FAERS Safety Report 10241082 (Version 1)
Quarter: 2014Q1

REPORT INFORMATION
  Report Type: Spontaneous
  Country: US (occurrence: None)
  Receive Date: 20140306
  Receipt Date: 20140306
  Transmission Date: 20141002
  Serious: Yes (Other)
  Sender: FDA-Public Use
  Company Number: 163-21880-13050578

PATIENT
  Age: 71 Year
  Sex: Male
  Weight: 59.8 kg

DRUGS (5)
  1. REVLIMID (LENALIDOMIDE) (25 MILLIGRAM, CAPSULES) [Suspect]
     Indication: PLASMA CELL MYELOMA
     Dosage: 25 MG, 21 IN 21 D, PO
     Route: 048
     Dates: start: 20130220, end: 20130429
  2. VELCADE (BORTEZOMIB) (UNKNOWN) [Concomitant]
  3. DEXAMETHASONE (DEXAMETHASONE) (UNKNOWN) [Concomitant]
  4. ASPIRIN (ACETYLSALICYLIC ACID) (UNKNOWN) (ACETYLSALICYLIC ACID) [Concomitant]
  5. ZOMETA (ZOLEDRONIC ACID) (UNKNOWN) [Concomitant]

REACTIONS (3)
  - Renal failure [None]
  - Paraesthesia [None]
  - Asthenia [None]
